FAERS Safety Report 24780781 (Version 1)
Quarter: 2024Q4

REPORT INFORMATION
  Report Type: Other
  Country: CA (occurrence: CA)
  Receive Date: 20241227
  Receipt Date: 20241227
  Transmission Date: 20250115
  Serious: Yes (Other)
  Sender: APOTEX
  Company Number: CA-APOTEX-2024AP019966

PATIENT
  Sex: Female

DRUGS (5)
  1. LITHIUM [Suspect]
     Active Substance: LITHIUM
     Indication: Product used for unknown indication
     Dosage: 1200 MILLIGRAM
     Route: 065
  2. LITHIUM [Suspect]
     Active Substance: LITHIUM
     Dosage: UNK
     Route: 065
  3. ABILIFY MAINTENA [Suspect]
     Active Substance: ARIPIPRAZOLE
     Indication: Product used for unknown indication
     Dosage: 400 MILLIGRAM
     Route: 030
  4. QUETIAPINE [Concomitant]
     Active Substance: QUETIAPINE
     Indication: Product used for unknown indication
     Dosage: 300 MILLIGRAM
     Route: 065
  5. QUETIAPINE [Concomitant]
     Active Substance: QUETIAPINE
     Dosage: UNK
     Route: 065

REACTIONS (11)
  - Adverse drug reaction [Unknown]
  - Delusion [Unknown]
  - Depression [Unknown]
  - Disturbance in attention [Unknown]
  - Hallucination, visual [Unknown]
  - Negative thoughts [Unknown]
  - Obsessive-compulsive disorder [Unknown]
  - Psychotic disorder [Unknown]
  - Thinking abnormal [Unknown]
  - Inappropriate schedule of product administration [Unknown]
  - Fatigue [Unknown]
